FAERS Safety Report 8140949-X (Version None)
Quarter: 2012Q1

REPORT INFORMATION
  Report Type: 
  Country: None (occurrence: None)
  Receive Date: 20120216
  Receipt Date: 20120201
  Transmission Date: 20120608
  Serious: Yes (Death)
  Sender: FDA-Public Use
  Company Number: SE-AMGEN-US336023

PATIENT
  Age: 76 Year
  Sex: Female

DRUGS (1)
  1. ETANERCEPT [Suspect]
     Indication: RHEUMATOID ARTHRITIS
     Dosage: DOSE UNKNOWN
     Dates: start: 20060620, end: 20080930

REACTIONS (1)
  - PANCREATIC CARCINOMA [None]
